FAERS Safety Report 22085084 (Version 1)
Quarter: 2023Q1

REPORT INFORMATION
  Report Type: Spontaneous
  Country: FR (occurrence: FR)
  Receive Date: 20230310
  Receipt Date: 20230310
  Transmission Date: 20230418
  Serious: Yes (Hospitalization)
  Sender: FDA-Public Use
  Company Number: None

PATIENT
  Age: 69 Year
  Sex: Female
  Weight: 84 kg

DRUGS (2)
  1. TRASTUZUMAB [Suspect]
     Active Substance: TRASTUZUMAB
     Indication: Breast cancer
     Dosage: 8MG/KG THEN 6MG/KG
     Route: 042
     Dates: start: 20220818, end: 20221110
  2. PACLITAXEL [Suspect]
     Active Substance: PACLITAXEL
     Indication: Breast cancer
     Dosage: 80 MILLIGRAM/SQ. METER
     Route: 042
     Dates: start: 20220818, end: 20221110

REACTIONS (1)
  - Left ventricular failure [Not Recovered/Not Resolved]

NARRATIVE: CASE EVENT DATE: 20221202
